FAERS Safety Report 5860976-2 (Version None)
Quarter: 2008Q3

REPORT INFORMATION
  Report Type: 
  Country: None (occurrence: None)
  Receive Date: 20080827
  Receipt Date: 20080117
  Transmission Date: 20090109
  Serious: No
  Sender: FDA-Public Use
  Company Number: US-ABBOTT-08P-163-0433775-00

PATIENT
  Sex: Male
  Weight: 84.444 kg

DRUGS (13)
  1. NIASPAN [Suspect]
     Indication: BLOOD CHOLESTEROL ABNORMAL
     Route: 048
     Dates: start: 20071201
  2. NIASPAN [Suspect]
     Dosage: WHITE
     Route: 048
  3. NIASPAN [Suspect]
     Dosage: WHITE
     Route: 048
  4. NIASPAN [Suspect]
     Dosage: WHITE
     Route: 048
  5. NIASPAN [Suspect]
     Dosage: WHITE
     Route: 048
  6. ROSUVASTATIN [Concomitant]
     Indication: DRUG USE FOR UNKNOWN INDICATION
     Route: 048
  7. JANUMET [Concomitant]
     Indication: DRUG USE FOR UNKNOWN INDICATION
     Route: 048
  8. VALSARTAN [Concomitant]
     Indication: BLOOD PRESSURE
     Route: 048
  9. RABEPRAZOLE SODIUM [Concomitant]
     Indication: DRUG USE FOR UNKNOWN INDICATION
     Route: 048
  10. ASPIRIN [Concomitant]
     Indication: DRUG USE FOR UNKNOWN INDICATION
     Route: 048
  11. IRON [Concomitant]
     Indication: DRUG USE FOR UNKNOWN INDICATION
  12. MAGNESIUM CHLORIDE ANHYDROUS [Concomitant]
     Indication: CARDIAC DISORDER
     Route: 048
  13. CITRICAL WITH VITAMIN D [Concomitant]
     Indication: DRUG USE FOR UNKNOWN INDICATION
     Route: 048

REACTIONS (1)
  - BLOOD GLUCOSE INCREASED [None]
